FAERS Safety Report 8058329-4 (Version None)
Quarter: 2012Q1

REPORT INFORMATION
  Report Type: 
  Country: None (occurrence: None)
  Receive Date: 20120120
  Receipt Date: 20120112
  Transmission Date: 20120608
  Serious: Yes (Hospitalization, Other)
  Sender: FDA-Public Use
  Company Number: US-US-EMD SERONO, INC.-7004207

PATIENT
  Sex: Female
  Weight: 63 kg

DRUGS (2)
  1. REBIF [Suspect]
     Indication: MULTIPLE SCLEROSIS
     Route: 058
     Dates: start: 20040101
  2. NAPROXEN (ALEVE) [Concomitant]
     Indication: PREMEDICATION

REACTIONS (8)
  - THORACIC VERTEBRAL FRACTURE [None]
  - RIB FRACTURE [None]
  - INTERVERTEBRAL DISC PROTRUSION [None]
  - HEAD INJURY [None]
  - FALL [None]
  - INFLUENZA LIKE ILLNESS [None]
  - CATARACT [None]
  - TOOTH INJURY [None]
